FAERS Safety Report 11937384 (Version 1)
Quarter: 2016Q1

REPORT INFORMATION
  Report Type: Spontaneous
  Country: IT (occurrence: IT)
  Receive Date: 20160121
  Receipt Date: 20160121
  Transmission Date: 20160526
  Serious: Yes (Life-Threatening, Hospitalization)
  Sender: FDA-Public Use
  Company Number: IT-ELI_LILLY_AND_COMPANY-IT201601007041

PATIENT
  Age: 54 Year
  Sex: Female

DRUGS (7)
  1. BENFLUOREX [Suspect]
     Active Substance: BENFLUOREX
     Indication: WEIGHT DECREASED
  2. SENNA                              /00142201/ [Suspect]
     Active Substance: SENNA LEAF
     Indication: WEIGHT DECREASED
  3. VALERIAAN [Suspect]
     Active Substance: VALERIAN
     Indication: WEIGHT DECREASED
  4. FLUOXETINE HYDROCHLORIDE. [Suspect]
     Active Substance: FLUOXETINE HYDROCHLORIDE
     Indication: WEIGHT DECREASED
     Dosage: UNK, UNKNOWN
     Route: 065
  5. CASCARA [Suspect]
     Active Substance: RHAMNUS PURSHIANA BARK EXTRACT
     Indication: WEIGHT DECREASED
  6. PANCREATIN [Suspect]
     Active Substance: PANCRELIPASE
     Indication: WEIGHT DECREASED
  7. METFORMINE [Suspect]
     Active Substance: METFORMIN HYDROCHLORIDE
     Indication: WEIGHT DECREASED

REACTIONS (3)
  - Ventricular fibrillation [Unknown]
  - Cardiac arrest [Unknown]
  - Off label use [Unknown]
